FAERS Safety Report 5397279-9 (Version None)
Quarter: 2007Q3

REPORT INFORMATION
  Report Type: 
  Country: None (occurrence: None)
  Receive Date: 20070723
  Receipt Date: 20070711
  Transmission Date: 20080115
  Serious: Yes (Hospitalization)
  Sender: FDA-Public Use
  Company Number: FSC_00139_2007

PATIENT
  Age: 78 Year
  Sex: Male

DRUGS (5)
  1. MANIDON (MANIDON HTA) 240 MG (FSC) [Suspect]
     Dosage: 240 MG QD ORAL
     Route: 048
  2. ENALAPRIL (ENALAPRIL) 20 MG [Suspect]
     Dosage: 20 MG QD ORAL
     Route: 048
  3. CLOPIDOGREL BISULFATE [Concomitant]
  4. ZOCOR [Concomitant]
  5. MIOL [Concomitant]

REACTIONS (5)
  - DRUG INTERACTION [None]
  - HYPERKALAEMIA [None]
  - HYPOTENSION [None]
  - RENAL FAILURE ACUTE [None]
  - SYNCOPE [None]
